FAERS Safety Report 5569868-X (Version None)
Quarter: 2007Q4

REPORT INFORMATION
  Report Type: 
  Country: None (occurrence: None)
  Receive Date: 20071220
  Receipt Date: 20070615
  Transmission Date: 20080405
  Serious: No
  Sender: FDA-Public Use
  Company Number: US-ABBOTT-07P-163-0372639-00

PATIENT
  Sex: Male
  Weight: 95 kg

DRUGS (3)
  1. OMNICEF [Suspect]
     Indication: SKIN INFECTION
     Route: 048
     Dates: start: 20070604, end: 20070614
  2. TETRACYCLINE [Suspect]
     Indication: SKIN INFECTION
     Route: 048
     Dates: start: 20070604, end: 20070614
  3. CREAM FOR HEMORRHOIDS [Concomitant]
     Indication: HAEMORRHOIDS
     Route: 061
     Dates: start: 20070615

REACTIONS (4)
  - BODY TEMPERATURE INCREASED [None]
  - DIARRHOEA HAEMORRHAGIC [None]
  - DYSURIA [None]
  - HAEMORRHOIDS [None]
